FAERS Safety Report 15662400 (Version 1)
Quarter: 2018Q4

REPORT INFORMATION
  Report Type: Spontaneous
  Country: US (occurrence: US)
  Receive Date: 20181127
  Receipt Date: 20181127
  Transmission Date: 20190205
  Serious: Yes (Other)
  Sender: FDA-Public Use
  Company Number: PHHY2018US160450

PATIENT

DRUGS (10)
  1. IFOSFAMIDE. [Suspect]
     Active Substance: IFOSFAMIDE
     Indication: NEOPLASM MALIGNANT
     Dosage: 4 G/M2, UNK
     Route: 065
  2. MESNA. [Suspect]
     Active Substance: MESNA
     Indication: NEOPLASM MALIGNANT
     Dosage: .67 G/M2, TID
     Route: 065
  3. DOCETAXEL. [Suspect]
     Active Substance: DOCETAXEL
     Dosage: 50 MG/M2, UNK
     Route: 065
  4. MESNA. [Suspect]
     Active Substance: MESNA
     Dosage: .67 G/M2, TID
     Route: 065
  5. DOXORUBICIN [Suspect]
     Active Substance: DOXORUBICIN
     Indication: NEOPLASM MALIGNANT
     Dosage: 40 MG/M2, UNK
     Route: 065
  6. DEXAMETHASONE. [Concomitant]
     Active Substance: DEXAMETHASONE
     Dosage: 8 MG, BID
     Route: 048
  7. DOCETAXEL. [Suspect]
     Active Substance: DOCETAXEL
     Indication: NEOPLASM MALIGNANT
     Dosage: 40 MG/M2, UNK
     Route: 065
  8. IFOSFAMIDE. [Suspect]
     Active Substance: IFOSFAMIDE
     Dosage: 5 G/M2, UNK
     Route: 065
  9. GRANULOCYTE COLONY STIMULATING FACTOR [Suspect]
     Active Substance: GRANULOCYTE COLONY-STIMULATING FACTOR NOS
     Indication: HAEMATOTOXICITY
     Dosage: 5 UG/KG, QD
     Route: 058
  10. DOXORUBICIN [Suspect]
     Active Substance: DOXORUBICIN
     Dosage: 50 MG/M2, UNK
     Route: 065

REACTIONS (2)
  - Product use in unapproved indication [Unknown]
  - Febrile neutropenia [Unknown]
